FAERS Safety Report 22262710 (Version 1)
Quarter: 2023Q2

REPORT INFORMATION
  Report Type: Report from Study
  Country: NL (occurrence: NL)
  Receive Date: 20230428
  Receipt Date: 20230428
  Transmission Date: 20230722
  Serious: Yes (Other)
  Sender: FDA-Public Use
  Company Number: NL-002147023-NVSC2023NL092544

PATIENT
  Sex: Female

DRUGS (2)
  1. LEQVIO [Suspect]
     Active Substance: INCLISIRAN SODIUM
     Indication: Cardiovascular disorder
     Dosage: 1 DOSAGE FORM, EVERY 6 MONTHS (284 MG/ 1.5 ML)
     Route: 058
     Dates: start: 20220523
  2. LEQVIO [Suspect]
     Active Substance: INCLISIRAN SODIUM
     Dosage: 1 DOSAGE FORM, EVERY 6 MONTHS (284 MG/ 1.5 ML)
     Route: 058
     Dates: start: 20220905

REACTIONS (3)
  - Infarction [Unknown]
  - Influenza like illness [Not Recovered/Not Resolved]
  - Off label use [Unknown]
